FAERS Safety Report 7246314-1 (Version None)
Quarter: 2011Q1

REPORT INFORMATION
  Report Type: 
  Country: None (occurrence: None)
  Receive Date: 20110126
  Receipt Date: 20110119
  Transmission Date: 20110831
  Serious: Yes (Hospitalization)
  Sender: FDA-Public Use
  Company Number: US-GILEAD-2010-0034174

PATIENT
  Sex: Female
  Weight: 71.732 kg

DRUGS (7)
  1. PREDNISONE [Concomitant]
  2. LETAIRIS [Suspect]
     Indication: PULMONARY ARTERIAL HYPERTENSION
     Route: 048
     Dates: start: 20101111, end: 20101203
  3. LIPITOR [Concomitant]
  4. LISINOPRIL AND HYDROCHLOROTHIAZIDE [Concomitant]
  5. COMBIVENT [Concomitant]
  6. LEVOXYL [Concomitant]
  7. CLARITIN [Concomitant]

REACTIONS (4)
  - DYSPNOEA [None]
  - SWELLING [None]
  - PRESYNCOPE [None]
  - OXYGEN SATURATION DECREASED [None]
